FAERS Safety Report 7509722-7 (Version None)
Quarter: 2011Q2

REPORT INFORMATION
  Report Type: 
  Country: None (occurrence: None)
  Receive Date: 20110519
  Receipt Date: 20110505
  Transmission Date: 20111010
  Serious: Yes (Hospitalization)
  Sender: FDA-Public Use
  Company Number: 2011MA005465

PATIENT
  Age: 43 Year

DRUGS (1)
  1. CARBAMAZEPINE [Suspect]

REACTIONS (4)
  - INFLUENZA LIKE ILLNESS [None]
  - PHARYNGITIS [None]
  - MALAISE [None]
  - DRUG RASH WITH EOSINOPHILIA AND SYSTEMIC SYMPTOMS [None]
